FAERS Safety Report 13860204 (Version 1)
Quarter: 2017Q3

REPORT INFORMATION
  Report Type: Spontaneous
  Country: ES (occurrence: ES)
  Receive Date: 20170811
  Receipt Date: 20170811
  Transmission Date: 20171127
  Serious: Yes (Hospitalization, Other)
  Sender: FDA-Public Use
  Company Number: ES-AMGEN-ESPSP2017082030

PATIENT
  Age: 7 Year
  Sex: Male

DRUGS (1)
  1. PROLIA [Suspect]
     Active Substance: DENOSUMAB
     Indication: OSTEOGENESIS IMPERFECTA
     Dosage: 1 MG/KG, Q3MO
     Route: 065
     Dates: start: 20160606

REACTIONS (6)
  - Hypercalcaemia [Unknown]
  - Blood parathyroid hormone increased [Unknown]
  - Hypocalcaemia [Recovered/Resolved]
  - Hip surgery [Unknown]
  - Off label use [Unknown]
  - Humerus fracture [Unknown]

NARRATIVE: CASE EVENT DATE: 2016
